FAERS Safety Report 8087320-7 (Version None)
Quarter: 2012Q1

REPORT INFORMATION
  Report Type: 
  Country: None (occurrence: None)
  Receive Date: 20120128
  Receipt Date: 20110420
  Transmission Date: 20120608
  Serious: No
  Sender: FDA-Public Use
  Company Number: US-ABBOTT-11P-163-0720641-00

PATIENT
  Age: 34 Year
  Sex: Female

DRUGS (6)
  1. HYDROCLOR [Concomitant]
     Indication: RHEUMATOID ARTHRITIS
  2. ISONIZID [Concomitant]
     Indication: TUBERCULIN TEST POSITIVE
  3. IBUPROFEN [Concomitant]
     Indication: PAIN
  4. METHOTREXATE [Concomitant]
     Indication: RHEUMATOID ARTHRITIS
  5. HUMIRA [Suspect]
     Indication: RHEUMATOID ARTHRITIS
     Dates: start: 20110418
  6. FOLIC ACID [Concomitant]
     Indication: VITAMIN SUPPLEMENTATION

REACTIONS (1)
  - INJECTION SITE PAIN [None]
